FAERS Safety Report 8312229-0 (Version None)
Quarter: 2012Q2

REPORT INFORMATION
  Report Type: 
  Country: None (occurrence: None)
  Receive Date: 20120425
  Receipt Date: 20120410
  Transmission Date: 20120825
  Serious: Yes (Hospitalization)
  Sender: FDA-Public Use
  Company Number: GB-BAUSCH-2011BL003539

PATIENT
  Age: 77 Year
  Sex: Male
  Weight: 81 kg

DRUGS (8)
  1. BORTEZOMIB [Suspect]
     Indication: MULTIPLE MYELOMA
     Route: 042
     Dates: start: 20110329, end: 20110405
  2. TRAMADOL HCL [Concomitant]
  3. DEXAMETHASONE [Suspect]
     Route: 048
     Dates: start: 20110329, end: 20110408
  4. CYCLOPHOSPHAMIDE [Concomitant]
     Indication: MULTIPLE MYELOMA
     Dates: start: 20090801, end: 20100101
  5. DEXAMETHASONE [Suspect]
     Indication: MULTIPLE MYELOMA
     Dates: start: 20090801, end: 20100101
  6. GABAPENTIN [Concomitant]
     Indication: INFECTION
     Route: 048
  7. SIMVASTATIN [Concomitant]
     Route: 048
  8. THALIDOMIDE [Concomitant]
     Dates: start: 20090801, end: 20100101

REACTIONS (5)
  - INFECTION [None]
  - PLATELET COUNT DECREASED [None]
  - FEBRILE NEUTROPENIA [None]
  - CONSTIPATION [None]
  - HAEMOGLOBIN DECREASED [None]
